FAERS Safety Report 7898288-8 (Version None)
Quarter: 2011Q4

REPORT INFORMATION
  Report Type: 
  Country: None (occurrence: None)
  Receive Date: 20111107
  Receipt Date: 20111103
  Transmission Date: 20120403
  Serious: Yes (Other)
  Sender: FDA-Public Use
  Company Number: DE-GLAXOSMITHKLINE-D0073256A

PATIENT
  Age: 18 Year
  Sex: Female

DRUGS (1)
  1. TROBALT [Suspect]
     Indication: PARTIAL SEIZURES
     Dosage: 800MG PER DAY
     Route: 048

REACTIONS (3)
  - DELUSION [None]
  - CONVULSION [None]
  - ANXIETY [None]
